FAERS Safety Report 10489948 (Version 1)
Quarter: 2014Q4

REPORT INFORMATION
  Report Type: Spontaneous
  Country: BR (occurrence: BR)
  Receive Date: 20141002
  Receipt Date: 20141002
  Transmission Date: 20150528
  Serious: Yes (Hospitalization, Other)
  Sender: FDA-Public Use
  Company Number: PHHY2014BR127250

PATIENT
  Age: 30 Year
  Sex: Male

DRUGS (4)
  1. SANDOSTATIN LAR DEPOT [Suspect]
     Active Substance: OCTREOTIDE ACETATE
     Indication: GASTRINOMA
     Dosage: 20 MG, EVERY 28 DAYS
     Route: 030
     Dates: start: 20120608
  2. SANDOSTATIN LAR DEPOT [Suspect]
     Active Substance: OCTREOTIDE ACETATE
     Dosage: 40 MG, UNK
  3. OCTREOTIDE [Suspect]
     Active Substance: OCTREOTIDE
     Indication: GASTRINOMA
     Dosage: 200 UG, DAY FOR 15 DAYS
     Route: 058
  4. OCTREOTIDE [Suspect]
     Active Substance: OCTREOTIDE
     Dosage: 200 UG, 1 HOUR PRIOR TO THE ANESTHESIA, IN THE WEEK 2 AFTER THE LAST DOSE OF SANDOSTATIN LAR

REACTIONS (6)
  - Diarrhoea [Unknown]
  - Dehydration [Unknown]
  - Duodenal ulcer [Unknown]
  - Spleen congestion [Unknown]
  - Cholecystitis [Unknown]
  - Weight decreased [Unknown]

NARRATIVE: CASE EVENT DATE: 20140414
